FAERS Safety Report 5847522-4 (Version None)
Quarter: 2008Q3

REPORT INFORMATION
  Report Type: 
  Country: None (occurrence: None)
  Receive Date: 20080814
  Receipt Date: 20080808
  Transmission Date: 20090109
  Serious: Yes (Hospitalization)
  Sender: FDA-Public Use
  Company Number: TPA2008A01287

PATIENT
  Sex: Female

DRUGS (4)
  1. ACTOS (PIOGLITAZONE HYDROCHLORIDE) (TABLETS) [Suspect]
     Indication: DIABETES MELLITUS
     Dosage: PER ORAL
     Route: 048
  2. INSULIN (INSULIN) [Concomitant]
  3. METFORMIN HCL [Concomitant]
  4. SULFONYLUREA (ORAL ANTIDIABETICS) [Concomitant]

REACTIONS (1)
  - VERTIGO [None]
